FAERS Safety Report 17051986 (Version 4)
Quarter: 2020Q2

REPORT INFORMATION
  Report Type: Report from Study
  Country: US (occurrence: US)
  Receive Date: 20191120
  Receipt Date: 20200518
  Transmission Date: 20200713
  Serious: Yes (Other)
  Sender: FDA-Public Use
  Company Number: NVSC2019US042080

PATIENT
  Sex: Female

DRUGS (1)
  1. GILENYA [Suspect]
     Active Substance: FINGOLIMOD HYDROCHLORIDE
     Indication: MULTIPLE SCLEROSIS
     Dosage: 0.5 MG, QD
     Route: 048
     Dates: start: 20190516

REACTIONS (5)
  - Musculoskeletal discomfort [Unknown]
  - JC polyomavirus test positive [Unknown]
  - Oropharyngeal pain [Unknown]
  - Central nervous system lesion [Unknown]
  - Paraesthesia [Unknown]
